FAERS Safety Report 23680278 (Version 2)
Quarter: 2024Q2

REPORT INFORMATION
  Report Type: Spontaneous
  Country: US (occurrence: US)
  Receive Date: 20240328
  Receipt Date: 20240402
  Transmission Date: 20240716
  Serious: Yes (Life-Threatening, Hospitalization, Other)
  Sender: FDA-Public Use
  Company Number: None

PATIENT
  Age: 13 Year
  Sex: Male

DRUGS (21)
  1. PREDNISOLONE [Suspect]
     Active Substance: PREDNISOLONE
     Indication: Colitis
     Dosage: UNK
     Route: 065
  2. PREDNISOLONE [Suspect]
     Active Substance: PREDNISOLONE
     Indication: Colitis ulcerative
     Dosage: 40 MILLIGRAM PER DAY
     Route: 048
  3. PREDNISOLONE [Suspect]
     Active Substance: PREDNISOLONE
     Dosage: 20 MILLIGRAM PER DAY
     Route: 048
  4. VANCOMYCIN [Suspect]
     Active Substance: VANCOMYCIN
     Indication: Clostridium difficile infection
     Dosage: UNK
     Route: 065
  5. VANCOMYCIN [Suspect]
     Active Substance: VANCOMYCIN
     Dosage: UNK, (PROLONGED)
     Route: 065
  6. METHOTREXATE [Suspect]
     Active Substance: METHOTREXATE
     Indication: Colitis ulcerative
     Dosage: UNK, (WEEKLY)
     Route: 065
  7. METHOTREXATE [Suspect]
     Active Substance: METHOTREXATE
     Indication: Colitis
  8. INFLIXIMAB [Suspect]
     Active Substance: INFLIXIMAB
     Indication: Colitis ulcerative
     Dosage: 15 MILLIGRAM/KILOGRAM, EVERY 4 WEEKS
     Route: 065
  9. INFLIXIMAB [Suspect]
     Active Substance: INFLIXIMAB
     Indication: Colitis
  10. USTEKINUMAB [Suspect]
     Active Substance: USTEKINUMAB
     Indication: Colitis
     Dosage: 260 MILLIGRAM, TOTAL (260 MG IV INDUCTION)
     Route: 042
  11. USTEKINUMAB [Suspect]
     Active Substance: USTEKINUMAB
     Indication: Colitis ulcerative
     Dosage: 90 MILLIGRAM, EVERY 8 WEEKS (8 WEEKS LATER)
     Route: 058
  12. USTEKINUMAB [Suspect]
     Active Substance: USTEKINUMAB
     Dosage: 90 MILLIGRAM, EVERY 4 WEEKS (DOSING FREQUENCY WAS DECREASED)
     Route: 058
  13. UPADACITINIB [Suspect]
     Active Substance: UPADACITINIB
     Indication: Colitis
     Dosage: 45 MILLIGRAM PER DAY (45 MG DAILY FOR 8 WEEKS)
     Route: 065
  14. UPADACITINIB [Suspect]
     Active Substance: UPADACITINIB
     Indication: Colitis ulcerative
     Dosage: 30 MILLIGRAM PER DAY (LATER INCREASED TO 45MG DAILY FOR A WEEK)
     Route: 065
  15. UPADACITINIB [Suspect]
     Active Substance: UPADACITINIB
     Dosage: 45 MILLIGRAM PER DAY (ESCALATION)
     Route: 065
  16. UPADACITINIB [Suspect]
     Active Substance: UPADACITINIB
     Dosage: 45 MILLIGRAM PER DAY (RESTARTED ON UPADACITINIB 45 MG DAILY)
     Route: 058
  17. VEDOLIZUMAB [Suspect]
     Active Substance: VEDOLIZUMAB
     Indication: Colitis
     Dosage: 300 MILLIGRAM (300 MG INDUCTION DOSE)
     Route: 042
  18. VEDOLIZUMAB [Suspect]
     Active Substance: VEDOLIZUMAB
     Indication: Colitis ulcerative
  19. METHYLPREDNISOLONE [Suspect]
     Active Substance: METHYLPREDNISOLONE
     Indication: Colitis
     Dosage: 40 MILLIGRAM
     Route: 042
  20. METHYLPREDNISOLONE [Suspect]
     Active Substance: METHYLPREDNISOLONE
     Indication: Colitis ulcerative
     Dosage: 16 MILLIGRAM, EVERY 12 HRS (16 MG TWICE DAILY)
     Route: 042
  21. METHYLPREDNISOLONE [Suspect]
     Active Substance: METHYLPREDNISOLONE
     Dosage: 16 MILLIGRAM PER DAY (DECREASED BY 50% TO 16 MG DAILY)
     Route: 042

REACTIONS (6)
  - Therapy non-responder [Unknown]
  - Hypoalbuminaemia [Recovered/Resolved]
  - Alanine aminotransferase increased [Recovered/Resolved]
  - Condition aggravated [Unknown]
  - Cytomegalovirus colitis [Recovered/Resolved]
  - Off label use [Unknown]
